FAERS Safety Report 17443277 (Version 2)
Quarter: 2020Q2

REPORT INFORMATION
  Report Type: Spontaneous
  Country: US (occurrence: US)
  Receive Date: 20200221
  Receipt Date: 20200507
  Transmission Date: 20200713
  Serious: Yes (Death)
  Sender: FDA-Public Use
  Company Number: US-ROCHE-2553274

PATIENT
  Sex: Female

DRUGS (1)
  1. HERCEPTIN [Suspect]
     Active Substance: TRASTUZUMAB
     Indication: BREAST CANCER
     Dosage: ONGOING:NO
     Route: 065

REACTIONS (3)
  - Metastases to lung [Fatal]
  - Metastases to gastrointestinal tract [Fatal]
  - Metastases to bladder [Fatal]
